FAERS Safety Report 9251735 (Version 2)
Quarter: 2013Q2

REPORT INFORMATION
  Report Type: Report from Study
  Country: US (occurrence: US)
  Receive Date: 20130424
  Receipt Date: 20130523
  Transmission Date: 20140414
  Serious: No
  Sender: FDA-Public Use
  Company Number: PHEH2013US009130

PATIENT
  Age: 32 Year
  Sex: Male

DRUGS (8)
  1. TASIGNA [Suspect]
     Indication: CHRONIC MYELOID LEUKAEMIA
     Dosage: 300 MG, BID
     Route: 048
     Dates: start: 20130326
  2. HYDREA [Concomitant]
     Dosage: 500 MG, UNK
  3. VICODIN [Concomitant]
  4. IBUPROFEN [Concomitant]
     Dosage: 200 MG, UNK
  5. ALLOPURINOL [Concomitant]
     Dosage: 100 MG, UNK
  6. SUDAFED [Concomitant]
     Dosage: 30 MG, UNK
  7. MULTIVITAMINS [Concomitant]
  8. VITAMIN D 2000 [Concomitant]
     Dosage: 2000 IU, UNK

REACTIONS (2)
  - Nausea [Unknown]
  - Fatigue [Not Recovered/Not Resolved]
